FAERS Safety Report 11123184 (Version 1)
Quarter: 2015Q2

REPORT INFORMATION
  Report Type: Spontaneous
  Country: US (occurrence: US)
  Receive Date: 20150519
  Receipt Date: 20150519
  Transmission Date: 20150821
  Serious: No
  Sender: FDA-Public Use
  Company Number: US-AUXILIUM PHARMACEUTICALS INC.-201411150

PATIENT
  Sex: Male
  Weight: 86.26 kg

DRUGS (4)
  1. GABAPENTIN. [Concomitant]
     Active Substance: GABAPENTIN
  2. ALPRAZOLAM. [Concomitant]
     Active Substance: ALPRAZOLAM
     Indication: SLEEP DISORDER
  3. XIAFLEX [Suspect]
     Active Substance: COLLAGENASE CLOSTRIDIUM HISTOLYTICUM
     Indication: PEYRONIE^S DISEASE
     Route: 026
     Dates: start: 2014, end: 2014
  4. TRAMADOL [Concomitant]
     Active Substance: TRAMADOL

REACTIONS (6)
  - Drug ineffective [Not Recovered/Not Resolved]
  - Penile swelling [Recovered/Resolved]
  - Penile haemorrhage [Unknown]
  - Injection site swelling [Recovered/Resolved]
  - Penile contusion [Recovered/Resolved]
  - Injection site pain [Recovered/Resolved]

NARRATIVE: CASE EVENT DATE: 2014
